FAERS Safety Report 16988417 (Version 2)
Quarter: 2019Q4

REPORT INFORMATION
  Report Type: Spontaneous
  Country: US (occurrence: US)
  Receive Date: 20191104
  Receipt Date: 20191114
  Transmission Date: 20200122
  Serious: Yes (Hospitalization, Other)
  Sender: FDA-Public Use
  Company Number: US-ROCHE-2452084

PATIENT
  Age: 71 Year
  Sex: Female
  Weight: 54.48 kg

DRUGS (1)
  1. ACTEMRA [Suspect]
     Active Substance: TOCILIZUMAB
     Indication: RHEUMATOID ARTHRITIS
     Route: 058
     Dates: start: 20180926

REACTIONS (8)
  - Muscle spasms [Recovering/Resolving]
  - Hypertension [Not Recovered/Not Resolved]
  - Night sweats [Unknown]
  - Feeling abnormal [Unknown]
  - Balance disorder [Recovering/Resolving]
  - Cancer surgery [Unknown]
  - Pruritus [Unknown]
  - Spinal operation [Unknown]

NARRATIVE: CASE EVENT DATE: 20181213
